FAERS Safety Report 8284268 (Version 3)
Quarter: 2016Q1

REPORT INFORMATION
  Report Type: Spontaneous
  Country: DE (occurrence: DE)
  Receive Date: 20111212
  Receipt Date: 20160130
  Transmission Date: 20160526
  Serious: Yes (Other)
  Sender: FDA-Public Use
  Company Number: DE-BRISTOL-MYERS SQUIBB COMPANY-16235350

PATIENT
  Age: 21 Year
  Sex: Female

DRUGS (2)
  1. FERRUM [Concomitant]
     Active Substance: FERROUS FUMARATE
     Indication: PRODUCT USED FOR UNKNOWN INDICATION
     Dosage: UNK
     Route: 048
  2. ABILIFY [Suspect]
     Active Substance: ARIPIPRAZOLE
     Indication: SCHIZOPHRENIA
     Dosage: 5 MG, TID
     Route: 048
     Dates: start: 2008

REACTIONS (5)
  - Premature labour [Recovered/Resolved]
  - Anaemia [Unknown]
  - Maternal exposure during pregnancy [Recovered/Resolved]
  - Normal newborn [Unknown]
  - Cystitis [Unknown]

NARRATIVE: CASE EVENT DATE: 20110726
